FAERS Safety Report 10540169 (Version 1)
Quarter: 2014Q4

REPORT INFORMATION
  Report Type: Spontaneous
  Country: US (occurrence: None)
  Receive Date: 20141023
  Receipt Date: 20141023
  Transmission Date: 20150529
  Serious: Yes (Other)
  Sender: FDA-Public Use
  Company Number: None

PATIENT
  Age: 63 Year
  Sex: Male
  Weight: 131.54 kg

DRUGS (6)
  1. INVOKANA [Suspect]
     Active Substance: CANAGLIFLOZIN
     Indication: DIABETES MELLITUS
     Dosage: TAKEN BY MOUTH
     Dates: start: 20140908, end: 20141010
  2. LANTUS [Concomitant]
     Active Substance: INSULIN GLARGINE
  3. DIOVAN [Concomitant]
     Active Substance: VALSARTAN
  4. METOPROLOL [Concomitant]
     Active Substance: METOPROLOL
  5. APIDRA [Concomitant]
     Active Substance: INSULIN GLULISINE
  6. RAMIPRIL. [Concomitant]
     Active Substance: RAMIPRIL

REACTIONS (3)
  - Dysuria [None]
  - Bladder pain [None]
  - Benign prostatic hyperplasia [None]

NARRATIVE: CASE EVENT DATE: 20141022
